FAERS Safety Report 10182647 (Version 1)
Quarter: 2014Q2

REPORT INFORMATION
  Report Type: Spontaneous
  Country: US (occurrence: None)
  Receive Date: 20140519
  Receipt Date: 20140519
  Transmission Date: 20141212
  Serious: No
  Sender: FDA-Public Use
  Company Number: None

PATIENT
  Sex: Female

DRUGS (12)
  1. SOVALDI [Suspect]
     Indication: HEPATITIS C
     Route: 048
     Dates: start: 20140418
  2. RIBAPAK [Suspect]
     Indication: HEPATITIS C
     Dosage: RIBAPAK 600-400MG DOSE PACK BID PO
     Route: 048
     Dates: start: 20140418
  3. IRON [Concomitant]
  4. B12 [Concomitant]
  5. FOLIC ACID [Concomitant]
  6. MULTIVITAMIN [Concomitant]
  7. CALCIUM [Concomitant]
  8. DHEA [Concomitant]
  9. ESTROGEN [Concomitant]
  10. THYROID [Concomitant]
  11. PROGESTERONE [Concomitant]
  12. VITAMIN D3 [Concomitant]

REACTIONS (2)
  - Fatigue [None]
  - Dyspnoea [None]
